FAERS Safety Report 20657986 (Version 1)
Quarter: 2022Q1

REPORT INFORMATION
  Report Type: Spontaneous
  Country: US (occurrence: None)
  Receive Date: 20220330
  Receipt Date: 20220330
  Transmission Date: 20220423
  Serious: Yes (Hospitalization)
  Sender: FDA-Public Use
  Company Number: None

PATIENT
  Sex: Male

DRUGS (4)
  1. TADALAFIL [Suspect]
     Active Substance: TADALAFIL
     Indication: Pulmonary arterial hypertension
     Route: 048
     Dates: start: 20181113
  2. ALEVE [Concomitant]
     Active Substance: NAPROXEN SODIUM
  3. AMBRISENTAN [Concomitant]
     Active Substance: AMBRISENTAN
  4. MULTI-VIT/TAB MINERALS [Concomitant]

REACTIONS (1)
  - Transfusion [None]
